FAERS Safety Report 12075330 (Version 3)
Quarter: 2016Q2

REPORT INFORMATION
  Report Type: Spontaneous
  Country: JP (occurrence: JP)
  Receive Date: 20160212
  Receipt Date: 20160513
  Transmission Date: 20160815
  Serious: Yes (Hospitalization, Other)
  Sender: FDA-Public Use
  Company Number: PHJP2016JP002894

PATIENT
  Sex: Male
  Weight: 55 kg

DRUGS (6)
  1. ULTIVA [Concomitant]
     Active Substance: REMIFENTANIL HYDROCHLORIDE
     Indication: SURGERY
     Dosage: 0.2 UG/KG, UNK
     Route: 042
     Dates: start: 20151224, end: 20151224
  2. PHYSIO 140 [Concomitant]
     Indication: SURGERY
     Dosage: 500 ML, QID
     Route: 042
     Dates: start: 20151224, end: 20151224
  3. CEFAMEZIN                          /01139101/ [Concomitant]
     Active Substance: CEFAZOLIN\LIDOCAINE
     Indication: SURGERY
     Dosage: 1 G, BID
     Route: 042
     Dates: start: 20151224, end: 20151224
  4. GLIVEC [Suspect]
     Active Substance: IMATINIB MESYLATE
     Indication: GASTROINTESTINAL STROMAL TUMOUR
     Dosage: 400 MG, UNK
     Route: 048
     Dates: start: 20100106
  5. ANAPEINE [Concomitant]
     Active Substance: ROPIVACAINE HYDROCHLORIDE
     Indication: SURGERY
     Dosage: 5 OT, UNK
     Route: 042
     Dates: start: 20151224, end: 20151224
  6. DIPRIVAN [Concomitant]
     Active Substance: PROPOFOL
     Indication: SURGERY
     Dosage: 4 UG/ML, UNK
     Route: 042
     Dates: start: 20151224, end: 20151224

REACTIONS (9)
  - Focal segmental glomerulosclerosis [Not Recovered/Not Resolved]
  - Second primary malignancy [Recovered/Resolved]
  - Hypertrophy [Unknown]
  - Renal cancer [Recovered/Resolved]
  - Glomerulonephritis chronic [Unknown]
  - Hyperplasia [Unknown]
  - Renal impairment [Not Recovered/Not Resolved]
  - Renal tubular atrophy [Unknown]
  - Kidney fibrosis [Unknown]
